FAERS Safety Report 9745385 (Version 1)
Quarter: 2013Q4

REPORT INFORMATION
  Report Type: Spontaneous
  Country: CA (occurrence: None)
  Receive Date: 20131206
  Receipt Date: 20131206
  Transmission Date: 20140711
  Serious: Yes (Life-Threatening, Disabling, Other)
  Sender: FDA-Public Use
  Company Number: None

PATIENT
  Age: 23 Year
  Sex: Male
  Weight: 108.86 kg

DRUGS (1)
  1. MEFLOQUINE [Suspect]
     Indication: MALARIA
     Dosage: 1 PILL
     Route: 048
     Dates: start: 2007

REACTIONS (6)
  - Depression [None]
  - Confusional state [None]
  - Amnesia [None]
  - Personality change [None]
  - Suicidal ideation [None]
  - Toxicity to various agents [None]
